FAERS Safety Report 12269504 (Version 3)
Quarter: 2017Q3

REPORT INFORMATION
  Report Type: Report from Study
  Country: None (occurrence: RU)
  Receive Date: 20160414
  Receipt Date: 20170727
  Transmission Date: 20171127
  Serious: Yes (Hospitalization, Other)
  Sender: FDA-Public Use
  Company Number: RU-ABBVIE-16P-251-1600514-00

PATIENT
  Age: 64 Year
  Sex: Male

DRUGS (31)
  1. VENETOCLAX. [Suspect]
     Active Substance: VENETOCLAX
     Route: 048
     Dates: start: 20150929, end: 20151005
  2. SUPRASTIN [Concomitant]
     Active Substance: CHLOROPYRAMINE HYDROCHLORIDE
     Indication: PREMEDICATION
     Dates: start: 20160202, end: 20160203
  3. PARACETAMOL [Concomitant]
     Active Substance: ACETAMINOPHEN
     Indication: PREMEDICATION
     Dates: start: 20160202, end: 20160203
  4. FLUCONAZOLE. [Concomitant]
     Active Substance: FLUCONAZOLE
     Indication: APPENDICITIS
     Dates: start: 20160302, end: 20160312
  5. DEXAMETHASONE. [Concomitant]
     Active Substance: DEXAMETHASONE
     Indication: PREMEDICATION
     Dates: start: 20160202, end: 20160203
  6. METROGYL [Concomitant]
     Active Substance: METRONIDAZOLE
     Indication: PNEUMONIA
     Dates: start: 20160302, end: 20160312
  7. CIPROFLOXACIN. [Concomitant]
     Active Substance: CIPROFLOXACIN
     Indication: APPENDICITIS
     Dates: start: 20160315, end: 20160322
  8. KETOROL [Concomitant]
     Active Substance: KETOROLAC TROMETHAMINE
     Indication: APPENDICITIS
     Dates: start: 20160314, end: 20160316
  9. FLUCONAZOLE. [Concomitant]
     Active Substance: FLUCONAZOLE
     Indication: PNEUMONIA
     Dates: start: 20160126, end: 20160205
  10. CEFTRIAXONE. [Concomitant]
     Active Substance: CEFTRIAXONE
     Dates: start: 20160302, end: 20160312
  11. EGILOK [Concomitant]
     Active Substance: METOPROLOL TARTRATE
     Indication: HYPERTENSION
     Dates: start: 201406
  12. SUPRASTIN [Concomitant]
     Active Substance: CHLOROPYRAMINE HYDROCHLORIDE
     Dates: start: 20160310, end: 20160310
  13. SODIUM CHLORIDE 0.9% [Concomitant]
     Active Substance: SODIUM CHLORIDE
     Indication: FLUID REPLACEMENT
     Dates: start: 20160314, end: 20160322
  14. VENETOCLAX. [Suspect]
     Active Substance: VENETOCLAX
     Indication: CHRONIC LYMPHOCYTIC LEUKAEMIA
     Dosage: DATE OF MOST RECENT DOSE PRIOR TO AE ONSET: ON 13 MAR 2016
     Route: 048
     Dates: start: 20150922, end: 20150928
  15. VENETOCLAX. [Suspect]
     Active Substance: VENETOCLAX
     Route: 048
     Dates: start: 20151006, end: 20151012
  16. VENETOCLAX. [Suspect]
     Active Substance: VENETOCLAX
     Route: 048
     Dates: start: 20151013, end: 20151019
  17. RITUXIMAB. [Suspect]
     Active Substance: RITUXIMAB
     Indication: CHRONIC LYMPHOCYTIC LEUKAEMIA
     Dosage: DATE OF MOST RECENT DOSE PRIOR TO AE ONSET ON 10 MAR 2016
     Route: 042
     Dates: start: 20151027, end: 20151027
  18. RITUXIMAB. [Suspect]
     Active Substance: RITUXIMAB
     Route: 042
     Dates: start: 20151124, end: 20151224
  19. ENAP [Concomitant]
     Active Substance: ENALAPRIL
     Indication: HYPERTENSION
     Dates: start: 201406
  20. SODIUM CHLORIDE 0.9% [Concomitant]
     Active Substance: SODIUM CHLORIDE
     Indication: PNEUMONIA
     Dates: start: 20160302, end: 20160312
  21. PARACETAMOL [Concomitant]
     Active Substance: ACETAMINOPHEN
     Dates: start: 20160310, end: 20160311
  22. RITUXIMAB. [Suspect]
     Active Substance: RITUXIMAB
     Route: 042
     Dates: start: 20160202, end: 20160310
  23. FLUCONAZOLE. [Concomitant]
     Active Substance: FLUCONAZOLE
     Dates: start: 20160314, end: 20160322
  24. SODIUM CHLORIDE 0.9% [Concomitant]
     Active Substance: SODIUM CHLORIDE
     Indication: PERITONEAL TUBERCULOSIS
     Dates: start: 20160310, end: 20160311
  25. METROGYL [Concomitant]
     Active Substance: METRONIDAZOLE
     Indication: APPENDICITIS
     Dates: start: 20160315, end: 20160322
  26. PAPAVERINE [Concomitant]
     Active Substance: PAPAVERINE
     Indication: APPENDICITIS
     Dates: start: 20160314, end: 20160314
  27. VENETOCLAX. [Suspect]
     Active Substance: VENETOCLAX
     Route: 048
     Dates: start: 20151020, end: 20160313
  28. CEFTRIAXONE. [Concomitant]
     Active Substance: CEFTRIAXONE
     Indication: PNEUMONIA
     Dates: start: 20160126, end: 20160205
  29. DEXAMETHASONE. [Concomitant]
     Active Substance: DEXAMETHASONE
     Dates: start: 20160310, end: 20160311
  30. SODIUM CHLORIDE 0.9% [Concomitant]
     Active Substance: SODIUM CHLORIDE
     Indication: PREMEDICATION
     Dates: start: 20160202, end: 20160203
  31. METROGYL [Concomitant]
     Active Substance: METRONIDAZOLE
     Dates: start: 20160314, end: 20160314

REACTIONS (1)
  - Peritoneal tuberculosis [Recovered/Resolved]

NARRATIVE: CASE EVENT DATE: 20160313
